FAERS Safety Report 8585070 (Version 2)
Quarter: 2012Q4

REPORT INFORMATION
  Report Type: Report from Study
  Country: US (occurrence: US)
  Receive Date: 20120529
  Receipt Date: 20121003
  Transmission Date: 20130627
  Serious: Yes (Hospitalization)
  Sender: FDA-Public Use
  Company Number: US-GLAXOSMITHKLINE-A0978928A

PATIENT
  Age: 58 Year
  Sex: Female
  Weight: 65.5 kg

DRUGS (1)
  1. PAZOPANIB [Suspect]
     Indication: UTERINE CANCER
     Dosage: 800MG Per day
     Route: 048
     Dates: start: 20110818

REACTIONS (5)
  - Anaemia [Recovered/Resolved]
  - Hypocalcaemia [Recovered/Resolved]
  - Urinary retention [Recovered/Resolved]
  - Blood creatinine increased [Recovered/Resolved]
  - Hypoglycaemia [Recovered/Resolved]
